FAERS Safety Report 20499037 (Version 2)
Quarter: 2022Q1

REPORT INFORMATION
  Report Type: Spontaneous
  Country: FR (occurrence: FR)
  Receive Date: 20220222
  Receipt Date: 20220301
  Transmission Date: 20220423
  Serious: Yes (Life-Threatening, Hospitalization, Other)
  Sender: FDA-Public Use
  Company Number: FR-Accord-254684

PATIENT
  Age: 16 Year
  Sex: Female
  Weight: 49 kg

DRUGS (22)
  1. METHOTREXATE [Interacting]
     Active Substance: METHOTREXATE
     Indication: Osteosarcoma
     Dosage: HIGH DOSE METHOTREXATE, 12000 MG/M^2
     Dates: start: 20170808, end: 2017
  2. KETOPROFEN [Interacting]
     Active Substance: KETOPROFEN
     Indication: Product used for unknown indication
     Dosage: SINGLE INTAKE
     Dates: start: 20170807, end: 20170807
  3. OXYCODONE [Concomitant]
     Active Substance: OXYCODONE
     Indication: Bone pain
     Dates: start: 201708
  4. METHYLPREDNISOLONE [Concomitant]
     Active Substance: METHYLPREDNISOLONE
     Dates: start: 20170807
  5. NEFOPAM [Concomitant]
     Active Substance: NEFOPAM
     Dates: start: 20170807
  6. APREPITANT [Concomitant]
     Active Substance: APREPITANT
     Indication: Nausea
     Dates: start: 20170807
  7. ATRACURIUM [Concomitant]
     Active Substance: ATRACURIUM
     Dates: start: 20170807
  8. MIDAZOLAM [Concomitant]
     Active Substance: MIDAZOLAM
     Dates: start: 20170807
  9. DEXAMETHASONE [Concomitant]
     Active Substance: DEXAMETHASONE
     Dates: start: 20170807
  10. NOMEGESTROL [Concomitant]
     Active Substance: NOMEGESTROL
  11. LEUCOVORIN [Concomitant]
     Active Substance: LEUCOVORIN
     Dosage: 15MG/M^2
     Dates: start: 20170809
  12. SUFENTANIL [Concomitant]
     Active Substance: SUFENTANIL
     Dates: start: 20170807
  13. PROPOFOL [Concomitant]
     Active Substance: PROPOFOL
     Dates: start: 20170807
  14. SEVOFLURANE [Concomitant]
     Active Substance: SEVOFLURANE
     Dates: start: 20170807
  15. PALONOSETRON [Concomitant]
     Active Substance: PALONOSETRON
     Indication: Nausea
     Dosage: 250 UG
     Dates: start: 20170808
  16. KETAMINE [Concomitant]
     Active Substance: KETAMINE
     Dates: start: 20170807
  17. CHLORPROMAZINE [Concomitant]
     Active Substance: CHLORPROMAZINE
  18. ONDANSETRON [Concomitant]
     Active Substance: ONDANSETRON
     Indication: Nausea
     Dates: start: 20170807
  19. ACETAMINOPHEN [Concomitant]
     Active Substance: ACETAMINOPHEN
     Dosage: 1 G IF NEEDED 4 TIMES A DAY,
     Dates: start: 201708
  20. METOCLOPRAMIDE [Concomitant]
     Active Substance: METOCLOPRAMIDE
     Dates: start: 201708
  21. ENOXAPARIN [Concomitant]
     Active Substance: ENOXAPARIN
     Indication: Prophylaxis
     Dosage: 4000 (IU)
  22. TRAMADOL [Concomitant]
     Active Substance: TRAMADOL
     Dates: start: 20170807

REACTIONS (14)
  - Toxic epidermal necrolysis [Recovering/Resolving]
  - Hepatic failure [Recovering/Resolving]
  - Cell death [Recovering/Resolving]
  - Cholestasis [Recovering/Resolving]
  - Diarrhoea [Recovering/Resolving]
  - Pancytopenia [Recovering/Resolving]
  - Vulvovaginal mycotic infection [Recovering/Resolving]
  - Drug interaction [Unknown]
  - Stomatitis [Recovering/Resolving]
  - Hepatic fibrosis [Recovering/Resolving]
  - Thrombocytopenia [Recovering/Resolving]
  - Febrile neutropenia [Recovering/Resolving]
  - Drug clearance decreased [Recovering/Resolving]
  - Anaemia [Recovering/Resolving]

NARRATIVE: CASE EVENT DATE: 20170811
